FAERS Safety Report 24028838 (Version 6)
Quarter: 2024Q3

REPORT INFORMATION
  Report Type: Spontaneous
  Country: US (occurrence: US)
  Receive Date: 20240628
  Receipt Date: 20240909
  Transmission Date: 20241016
  Serious: Yes (Hospitalization)
  Sender: ROCHE
  Company Number: US-ROCHE-10000006568

PATIENT
  Age: 55 Year
  Sex: Male
  Weight: 149.68 kg

DRUGS (5)
  1. ACTEMRA [Suspect]
     Active Substance: TOCILIZUMAB
     Indication: Rheumatoid arthritis
     Route: 058
     Dates: start: 2022
  2. ACTEMRA [Suspect]
     Active Substance: TOCILIZUMAB
  3. ROCEPHIN [Suspect]
     Active Substance: CEFTRIAXONE SODIUM
     Indication: Product used for unknown indication
     Route: 065
  4. TOUJEO [Concomitant]
     Active Substance: INSULIN GLARGINE
     Indication: Diabetes mellitus
     Route: 058
  5. INSULIN GLARGINE [Concomitant]
     Active Substance: INSULIN GLARGINE
     Indication: Diabetes mellitus
     Dosage: MORNING AND BEDTIME
     Route: 058

REACTIONS (7)
  - Pain [Unknown]
  - Spinal fracture [Recovering/Resolving]
  - Fall [Unknown]
  - Device issue [Unknown]
  - Device issue [Unknown]
  - Drug hypersensitivity [Unknown]
  - Off label use [Unknown]

NARRATIVE: CASE EVENT DATE: 20240428
